FAERS Safety Report 4926156-X (Version None)
Quarter: 2006Q1

REPORT INFORMATION
  Report Type: 
  Country: None (occurrence: None)
  Receive Date: 20060228
  Receipt Date: 20050830
  Transmission Date: 20060701
  Serious: No
  Sender: FDA-Public Use
  Company Number: US-GLAXOSMITHKLINE-A0572410A

PATIENT
  Age: 50 Year
  Sex: Female

DRUGS (6)
  1. LAMICTAL [Suspect]
     Indication: BIPOLAR DISORDER
     Dosage: 100MG TWICE PER DAY
     Route: 048
  2. PARNATE [Concomitant]
  3. ZYPREXA [Concomitant]
  4. UNKNOWN MEDICATION [Concomitant]
  5. ATIVAN [Concomitant]
  6. COUMADIN [Concomitant]

REACTIONS (4)
  - BLISTER [None]
  - PARAESTHESIA ORAL [None]
  - RASH [None]
  - SKIN EXFOLIATION [None]
